FAERS Safety Report 13466917 (Version 1)
Quarter: 2017Q2

REPORT INFORMATION
  Report Type: Spontaneous
  Country: US (occurrence: US)
  Receive Date: 20170421
  Receipt Date: 20170421
  Transmission Date: 20170830
  Serious: No
  Sender: FDA-Public Use
  Company Number: US-GLAXOSMITHKLINE-US2017055864

PATIENT
  Sex: Female

DRUGS (1)
  1. BACTROBAN [Suspect]
     Active Substance: MUPIROCIN\MUPIROCIN CALCIUM
     Indication: SINUSITIS
     Dosage: 0.5 DF, PRN
     Route: 045

REACTIONS (3)
  - Off label use [Unknown]
  - Product use issue [Unknown]
  - Incorrect route of drug administration [Unknown]
